FAERS Safety Report 8024342-6 (Version None)
Quarter: 2011Q4

REPORT INFORMATION
  Report Type: 
  Country: None (occurrence: None)
  Receive Date: 20111130
  Receipt Date: 20110819
  Transmission Date: 20120403
  Serious: Yes (Other)
  Sender: FDA-Public Use
  Company Number: 333917

PATIENT
  Age: 70 Year
  Sex: Male
  Weight: 116.6 kg

DRUGS (2)
  1. NOVOLOG [Suspect]
     Indication: TYPE 2 DIABETES MELLITUS
     Dosage: 5 U, TID BEFORE MEALS, SUBCUTANEOUS
     Route: 058
     Dates: start: 20090101
  2. LEVEMIR [Suspect]
     Indication: TYPE 2 DIABETES MELLITUS
     Dosage: 25 U, QD EVERY MORNING, SUBCUTANEOUS
     Route: 058
     Dates: start: 20090101

REACTIONS (1)
  - HYPOGLYCAEMIA [None]
